FAERS Safety Report 8148063-4 (Version None)
Quarter: 2012Q1

REPORT INFORMATION
  Report Type: 
  Country: None (occurrence: None)
  Receive Date: 20120218
  Receipt Date: 20110504
  Transmission Date: 20120608
  Serious: No
  Sender: FDA-Public Use
  Company Number: US-ALLERGAN-1105300US

PATIENT
  Age: 69 Year
  Sex: Female

DRUGS (5)
  1. BOTOX COSMETIC [Suspect]
     Dosage: UNK UNITS, SINGLE
     Dates: start: 20050101, end: 20050101
  2. BOTOX COSMETIC [Suspect]
     Dosage: UNK UNITS, SINGLE
  3. VAGIFEM [Concomitant]
     Indication: PRODUCT USED FOR UNKNOWN INDICATION
     Dosage: UNK
  4. BOTOX COSMETIC [Suspect]
     Indication: SKIN WRINKLING
     Dosage: UNK UNITS, SINGLE
     Route: 030
     Dates: start: 20100923, end: 20100923
  5. METHIMAZOLE [Concomitant]
     Indication: HYPERTHYROIDISM
     Dosage: 5 MG, QD
     Route: 048
     Dates: start: 20100101, end: 20110401

REACTIONS (4)
  - LACRIMATION INCREASED [None]
  - OCULAR DISCOMFORT [None]
  - SWELLING FACE [None]
  - DIPLOPIA [None]
